FAERS Safety Report 16491289 (Version 1)
Quarter: 2019Q2

REPORT INFORMATION
  Report Type: Spontaneous
  Country: US (occurrence: US)
  Receive Date: 20190628
  Receipt Date: 20190628
  Transmission Date: 20190711
  Serious: No
  Sender: FDA-Public Use
  Company Number: US-INDIVIOR LIMITED-INDV-118599-2019

PATIENT
  Age: 31 Year
  Sex: Female

DRUGS (2)
  1. SUBLOCADE [Suspect]
     Active Substance: BUPRENORPHINE
     Indication: DRUG DEPENDENCE
     Dosage: 300 MILLIGRAM, QMO
     Route: 058
     Dates: start: 20190326
  2. BUPRENORPHINE TABLET GENERIC [Suspect]
     Active Substance: BUPRENORPHINE
     Indication: DRUG DEPENDENCE
     Dosage: 16MG, DAILY
     Route: 065

REACTIONS (4)
  - Maternal exposure during pregnancy [Not Recovered/Not Resolved]
  - Injection site pain [Recovered/Resolved]
  - Dizziness [Recovered/Resolved]
  - Injection site extravasation [Recovered/Resolved]

NARRATIVE: CASE EVENT DATE: 20190326
